FAERS Safety Report 4640684-6 (Version None)
Quarter: 2005Q2

REPORT INFORMATION
  Report Type: 
  Country: None (occurrence: None)
  Receive Date: 20050419
  Receipt Date: 20050406
  Transmission Date: 20051028
  Serious: Yes (Life-Threatening, Hospitalization)
  Sender: FDA-Public Use
  Company Number: 2005034551

PATIENT
  Age: 14 Year
  Sex: Female
  Weight: 54 kg

DRUGS (2)
  1. UNACID INJECTION (SULBACTAM, AMPICILLIN) [Suspect]
     Indication: LARYNGITIS
     Dosage: ( D), INTRAVENOUS
     Route: 042
     Dates: start: 20041201, end: 20041201
  2. UNACID PD ORAL (SULTAMICILLIN TOSILATE) [Suspect]
     Indication: LARYNGITIS
     Dosage: (1) , ORAL
     Route: 048
     Dates: start: 20041201, end: 20041201

REACTIONS (3)
  - ANAEMIA [None]
  - COLITIS ULCERATIVE [None]
  - ENTEROCOLITIS HAEMORRHAGIC [None]
